FAERS Safety Report 16016495 (Version 2)
Quarter: 2019Q2

REPORT INFORMATION
  Report Type: Spontaneous
  Country: US (occurrence: US)
  Receive Date: 20190228
  Receipt Date: 20190409
  Transmission Date: 20190711
  Serious: No
  Sender: FDA-Public Use
  Company Number: US-GLAXOSMITHKLINE-US2019GSK031118

PATIENT
  Sex: Female

DRUGS (1)
  1. ALBUTEROL SULFATE INHALATION POWDER [Suspect]
     Active Substance: ALBUTEROL SULFATE
     Indication: PRODUCT USED FOR UNKNOWN INDICATION
     Dosage: UNK
     Route: 055

REACTIONS (2)
  - Product complaint [Unknown]
  - Product dose omission [Unknown]

NARRATIVE: CASE EVENT DATE: 20190219
